FAERS Safety Report 9437829 (Version 1)
Quarter: 2013Q3

REPORT INFORMATION
  Report Type: Spontaneous
  Country: US (occurrence: US)
  Receive Date: 20130802
  Receipt Date: 20130802
  Transmission Date: 20140515
  Serious: Yes (Other)
  Sender: FDA-Public Use
  Company Number: US-FRI-1000047458

PATIENT
  Sex: Female

DRUGS (1)
  1. LINZESS [Suspect]
     Dosage: 145 MCG
     Route: 048

REACTIONS (1)
  - Colitis [Unknown]
